FAERS Safety Report 7442954 (Version 4)
Quarter: 2014Q2

REPORT INFORMATION
  Report Type: Report from Study
  Country: JP (occurrence: JP)
  Receive Date: 20100628
  Receipt Date: 20140416
  Transmission Date: 20141212
  Serious: Yes (Death, Other)
  Sender: FDA-Public Use
  Company Number: PHHY2010JP41298

PATIENT
  Age: 70 Year
  Sex: Female

DRUGS (14)
  1. ADALAT [Concomitant]
     Dosage: 20 MG
     Route: 048
     Dates: start: 20100202, end: 20100607
  2. ONEALFA [Concomitant]
     Indication: PROPHYLAXIS
     Dosage: 1.0 UG
     Route: 048
     Dates: start: 20100603
  3. ALDACTONE [Concomitant]
     Indication: OEDEMA PERIPHERAL
     Dosage: 25 MG, DAILY
     Route: 048
     Dates: start: 20100603, end: 20100603
  4. ALDACTONE [Concomitant]
     Indication: HYPERTENSION
  5. GASTER [Concomitant]
     Indication: PROPHYLAXIS
     Dosage: 20 MG
     Route: 048
     Dates: start: 20100603, end: 20100603
  6. REBAMIPIDE [Concomitant]
     Indication: PROPHYLAXIS
     Dosage: 200 MG
     Route: 048
     Dates: end: 20100603
  7. ISCOTIN [Concomitant]
     Indication: PROPHYLAXIS
     Dosage: 400 MG
     Route: 048
     Dates: end: 20100601
  8. PREDNISOLONE [Concomitant]
     Indication: TUMOUR ASSOCIATED FEVER
     Dosage: 2 MG
     Route: 048
     Dates: end: 20100603
  9. MAGMITT [Concomitant]
     Indication: PROPHYLAXIS
     Dosage: 330 MG
     Route: 048
     Dates: end: 20100603
  10. ROHYPNOL [Concomitant]
     Indication: INSOMNIA
     Route: 048
  11. AMN107 [Suspect]
     Indication: CHRONIC MYELOID LEUKAEMIA TRANSFORMATION
     Dosage: 200 MG, DAILY
     Route: 048
     Dates: start: 20100202, end: 20100224
  12. AMN107 [Suspect]
     Dosage: 200 MG, DAILY
     Route: 048
     Dates: start: 20100406
  13. LUPRAC [Concomitant]
     Dosage: 8 MG, DAILY
     Route: 048
     Dates: start: 20100521, end: 20100607
  14. BAKTAR [Concomitant]
     Indication: PROPHYLAXIS
     Dosage: 0.5 DF
     Route: 048
     Dates: start: 20100202, end: 20100607

REACTIONS (11)
  - Septic shock [Fatal]
  - Oedema peripheral [Not Recovered/Not Resolved]
  - Platelet count decreased [Recovered/Resolved]
  - Blood creatinine increased [Not Recovered/Not Resolved]
  - Red blood cell count decreased [Unknown]
  - White blood cell count decreased [Unknown]
  - White blood cell count increased [Unknown]
  - Blood uric acid increased [Not Recovered/Not Resolved]
  - Blood lactate dehydrogenase increased [Unknown]
  - Gamma-glutamyltransferase increased [Unknown]
  - Blood urea increased [Unknown]
